FAERS Safety Report 4742116-6 (Version None)
Quarter: 2005Q3

REPORT INFORMATION
  Report Type: 
  Country: None (occurrence: None)
  Receive Date: 20050808
  Receipt Date: 20050722
  Transmission Date: 20060218
  Serious: Yes (Hospitalization)
  Sender: FDA-Public Use
  Company Number: USA050597298

PATIENT
  Age: 69 Year
  Sex: Female
  Weight: 87 kg

DRUGS (8)
  1. FORTEO [Suspect]
     Indication: OSTEOPOROSIS
     Dates: start: 20040401, end: 20050710
  2. GLUCOTROL XL [Concomitant]
  3. METOPROLOL TARTRATE [Concomitant]
  4. ASPIRIN [Concomitant]
  5. AVANDIA [Concomitant]
  6. LASIX [Concomitant]
  7. VICODIN [Concomitant]
  8. VYTORIN [Concomitant]

REACTIONS (10)
  - BONE PAIN [None]
  - DIZZINESS [None]
  - DRY SKIN [None]
  - FALL [None]
  - HOT FLUSH [None]
  - MUSCLE SPASMS [None]
  - OEDEMA PERIPHERAL [None]
  - PAIN IN EXTREMITY [None]
  - TIBIA FRACTURE [None]
  - WALKING AID USER [None]
